FAERS Safety Report 13584270 (Version 1)
Quarter: 2017Q2

REPORT INFORMATION
  Report Type: Spontaneous
  Country: US (occurrence: US)
  Receive Date: 20170525
  Receipt Date: 20170525
  Transmission Date: 20170830
  Serious: Yes (Other)
  Sender: FDA-Public Use
  Company Number: None

PATIENT
  Age: 14 Year
  Sex: Female
  Weight: 56.25 kg

DRUGS (1)
  1. DENOREX THERAPEUTIC [Suspect]
     Active Substance: COAL TAR\MENTHOL
     Indication: DANDRUFF
     Dates: start: 20170524, end: 20170524

REACTIONS (6)
  - Rash [None]
  - Pruritus [None]
  - Local swelling [None]
  - Urticaria [None]
  - Dyspnoea [None]
  - Hypersensitivity [None]

NARRATIVE: CASE EVENT DATE: 20170525
